FAERS Safety Report 23202974 (Version 1)
Quarter: 2023Q4

REPORT INFORMATION
  Report Type: Report from Study
  Country: US (occurrence: US)
  Receive Date: 20231120
  Receipt Date: 20231120
  Transmission Date: 20240110
  Serious: Yes (Death, Other)
  Sender: FDA-Public Use
  Company Number: US-GILEAD-2023-0651590

PATIENT
  Age: 86 Year
  Sex: Female

DRUGS (2)
  1. AZTREONAM LYSINE [Suspect]
     Active Substance: AZTREONAM LYSINE
     Indication: Bronchiectasis
     Dosage: 75 MG VIA NEBULIZER THREE TIMES DAILY
     Route: 055
     Dates: start: 202307
  2. TOBRAMYCIN [Concomitant]
     Active Substance: TOBRAMYCIN
     Indication: Bronchiectasis
     Dosage: 300MG VIA NEBULIZER TWICE DAILY 28ON/28OFF
     Route: 055
     Dates: start: 202205

REACTIONS (2)
  - Death [Fatal]
  - Off label use [Unknown]
